FAERS Safety Report 25674610 (Version 1)
Quarter: 2025Q3

REPORT INFORMATION
  Report Type: Spontaneous
  Country: EU (occurrence: EU)
  Receive Date: 20250813
  Receipt Date: 20250813
  Transmission Date: 20251021
  Serious: Yes (Disabling, Congenital Anomaly)
  Sender: RANBAXY
  Company Number: EU-SUN PHARMACEUTICAL INDUSTRIES LTD-2025RR-522452

PATIENT
  Sex: Male
  Weight: 3.7 kg

DRUGS (6)
  1. LEVETIRACETAM [Suspect]
     Active Substance: LEVETIRACETAM
     Indication: Epilepsy
     Route: 064
     Dates: start: 202002, end: 202008
  2. LEVETIRACETAM [Suspect]
     Active Substance: LEVETIRACETAM
     Route: 064
     Dates: start: 202008, end: 202008
  3. LEVETIRACETAM [Suspect]
     Active Substance: LEVETIRACETAM
     Route: 064
     Dates: start: 202008, end: 202011
  4. VIMPAT [Suspect]
     Active Substance: LACOSAMIDE
     Indication: Epilepsy
     Route: 064
     Dates: start: 202002, end: 202009
  5. VIMPAT [Suspect]
     Active Substance: LACOSAMIDE
     Route: 064
     Dates: start: 202009, end: 202009
  6. VIMPAT [Suspect]
     Active Substance: LACOSAMIDE
     Route: 064
     Dates: start: 202009, end: 202011

REACTIONS (2)
  - Cataract congenital [Recovered/Resolved with Sequelae]
  - Foetal exposure during pregnancy [Unknown]
